FAERS Safety Report 21577040 (Version 1)
Quarter: 2022Q4

REPORT INFORMATION
  Report Type: Report from Study
  Country: US (occurrence: US)
  Receive Date: 20221110
  Receipt Date: 20221110
  Transmission Date: 20230113
  Serious: Yes (Other)
  Sender: FDA-Public Use
  Company Number: US-CATALYST PHARMACEUTICALS, INC-US-CATA-22-02640

PATIENT
  Sex: Female

DRUGS (1)
  1. FIRDAPSE [Suspect]
     Active Substance: AMIFAMPRIDINE PHOSPHATE
     Indication: Myasthenic syndrome
     Dosage: 15 MILLIGRAM, TID
     Route: 048
     Dates: start: 202008

REACTIONS (7)
  - Cataract [Unknown]
  - Foot fracture [Unknown]
  - Memory impairment [Unknown]
  - Aphasia [Unknown]
  - Drooling [Unknown]
  - Hypoaesthesia [Unknown]
  - Paraesthesia oral [Unknown]

NARRATIVE: CASE EVENT DATE: 20221001
